FAERS Safety Report 8001934-1 (Version None)
Quarter: 2011Q4

REPORT INFORMATION
  Report Type: 
  Country: None (occurrence: None)
  Receive Date: 20111222
  Receipt Date: 20111220
  Transmission Date: 20120403
  Serious: Yes (Hospitalization, Other)
  Sender: FDA-Public Use
  Company Number: US-BAYER-2011-037907

PATIENT
  Age: 38 Year
  Sex: Female

DRUGS (2)
  1. INTERFERON BETA-1B [Suspect]
     Dosage: 8 MIU, QOD
     Route: 058
     Dates: end: 20111120
  2. INTERFERON BETA-1B [Suspect]
     Indication: RELAPSING-REMITTING MULTIPLE SCLEROSIS
     Dosage: 4 MIU, QOD
     Route: 058
     Dates: start: 20110321

REACTIONS (12)
  - PAIN [None]
  - INFLUENZA LIKE ILLNESS [None]
  - OEDEMA PERIPHERAL [None]
  - BIPOLAR DISORDER [None]
  - HEADACHE [None]
  - FATIGUE [None]
  - COGNITIVE DISORDER [None]
  - THINKING ABNORMAL [None]
  - BORDERLINE PERSONALITY DISORDER [None]
  - POST-TRAUMATIC STRESS DISORDER [None]
  - JOINT STIFFNESS [None]
  - ALCOHOLISM [None]
